FAERS Safety Report 5000511-4 (Version None)
Quarter: 2006Q2

REPORT INFORMATION
  Report Type: 
  Country: None (occurrence: None)
  Receive Date: 20060512
  Receipt Date: 20060502
  Transmission Date: 20061013
  Serious: Yes (Other)
  Sender: FDA-Public Use
  Company Number: US-JNJFOC-20060201136

PATIENT
  Sex: Female
  Weight: 79.38 kg

DRUGS (11)
  1. REMICADE [Suspect]
     Route: 042
  2. REMICADE [Suspect]
     Route: 042
  3. REMICADE [Suspect]
     Route: 042
  4. REMICADE [Suspect]
     Route: 042
  5. REMICADE [Suspect]
     Route: 042
  6. REMICADE [Suspect]
     Route: 042
  7. REMICADE [Suspect]
     Route: 042
  8. REMICADE [Suspect]
     Indication: CROHN'S DISEASE
     Route: 042
  9. FLAGYL [Suspect]
  10. CIPRO [Concomitant]
  11. BIRTH CONTROL [Concomitant]
     Route: 048

REACTIONS (4)
  - COLITIS ULCERATIVE [None]
  - DYSKINESIA [None]
  - ECTOPIC PREGNANCY [None]
  - TREMOR [None]
